FAERS Safety Report 6435181-1 (Version None)
Quarter: 2009Q4

REPORT INFORMATION
  Report Type: 
  Country: None (occurrence: None)
  Receive Date: 20091110
  Receipt Date: 20091026
  Transmission Date: 20100525
  Serious: Yes (Death)
  Sender: FDA-Public Use
  Company Number: KR-GENENTECH-238020

PATIENT
  Sex: Male

DRUGS (7)
  1. BEVACIZUMAB [Suspect]
     Indication: COLON CANCER
     Dosage: 580 MG, Q3W
     Route: 042
     Dates: start: 20051212, end: 20061023
  2. OXALIPLATIN [Suspect]
     Indication: COLON CANCER
     Dosage: 85 MG/M2, Q2W
     Route: 042
     Dates: start: 20051212, end: 20060619
  3. FLUOROURACIL [Suspect]
     Indication: COLON CANCER
     Dosage: 728 MG, Q2W
     Route: 042
     Dates: start: 20051212, end: 20060619
  4. MAGNESIUM HYDROXIDE TAB [Concomitant]
     Indication: DRUG USE FOR UNKNOWN INDICATION
     Dates: start: 20060821
  5. AMITRIPTYLINE [Concomitant]
     Indication: DRUG USE FOR UNKNOWN INDICATION
     Dates: start: 20060710
  6. GABAPENTIN [Concomitant]
     Indication: DRUG USE FOR UNKNOWN INDICATION
     Dates: start: 20060613
  7. CALCIUM POLYCARBOPHIL [Concomitant]
     Indication: DRUG USE FOR UNKNOWN INDICATION
     Dates: start: 20061204

REACTIONS (1)
  - DEATH [None]
